FAERS Safety Report 4954984-3 (Version None)
Quarter: 2006Q1

REPORT INFORMATION
  Report Type: 
  Country: None (occurrence: None)
  Receive Date: 20060322
  Receipt Date: 20060308
  Transmission Date: 20060701
  Serious: Yes (Hospitalization)
  Sender: FDA-Public Use
  Company Number: 2006032531

PATIENT
  Age: 58 Year
  Sex: Male
  Weight: 84.1422 kg

DRUGS (7)
  1. SUTENT [Suspect]
     Indication: NEUROENDOCRINE TUMOUR
     Dosage: 50 MG (50 MG, 1 IN 1 D), ORAL
     Route: 048
     Dates: start: 20040623
  2. LANOXIN [Concomitant]
  3. ATENOLOL [Concomitant]
  4. HYDROCHLOROTHIAZIDE [Concomitant]
  5. PANCREASE (PANCRELIPASE) [Concomitant]
  6. RANITIDINE HYDROCHLORIDE [Concomitant]
  7. CITRUCEL (METHYLCELLULOSE) [Concomitant]

REACTIONS (10)
  - CAECITIS [None]
  - DEVICE MIGRATION [None]
  - DIARRHOEA [None]
  - DYSPEPSIA [None]
  - FLATULENCE [None]
  - GASTRITIS [None]
  - NAUSEA [None]
  - OBSTRUCTION GASTRIC [None]
  - VOMITING [None]
  - WEIGHT DECREASED [None]
